FAERS Safety Report 5939595-5 (Version None)
Quarter: 2008Q4

REPORT INFORMATION
  Report Type: 
  Country: None (occurrence: None)
  Receive Date: 20081030
  Receipt Date: 20081015
  Transmission Date: 20090506
  Serious: Yes (Hospitalization, Other)
  Sender: FDA-Public Use
  Company Number: 2008SI018768

PATIENT
  Age: 71 Year
  Sex: Male

DRUGS (3)
  1. BYSTOLIC [Suspect]
     Indication: HYPERTENSION
     Dosage: 10 MG; DAILY; ORAL
     Route: 048
     Dates: start: 20080501, end: 20080801
  2. CARDIZEM [Concomitant]
  3. BENICAR [Concomitant]

REACTIONS (3)
  - ANAEMIA [None]
  - MYELODYSPLASTIC SYNDROME [None]
  - THROMBOCYTOPENIA [None]
